APPROVED DRUG PRODUCT: ACYCLOVIR
Active Ingredient: ACYCLOVIR
Strength: 5%
Dosage Form/Route: OINTMENT;TOPICAL
Application: A201501 | Product #001 | TE Code: AB
Applicant: XIROMED PHARMA ESPANA SL
Approved: Jan 29, 2020 | RLD: No | RS: No | Type: RX